FAERS Safety Report 6969456-4 (Version None)
Quarter: 2010Q3

REPORT INFORMATION
  Report Type: 
  Country: None (occurrence: None)
  Receive Date: 20100902
  Receipt Date: 20100825
  Transmission Date: 20110219
  Serious: Yes (Hospitalization)
  Sender: FDA-Public Use
  Company Number: CIP10002011

PATIENT
  Age: 83 Year
  Sex: Female

DRUGS (1)
  1. ACTONEL [Suspect]
     Dosage: 150 MG ONCE A MONTH, ORAL
     Route: 048
     Dates: start: 20100101

REACTIONS (10)
  - BACK PAIN [None]
  - BONE PAIN [None]
  - FINGER DEFORMITY [None]
  - GAIT DISTURBANCE [None]
  - MOVEMENT DISORDER [None]
  - MUSCLE SPASMS [None]
  - MUSCULOSKELETAL CHEST PAIN [None]
  - MUSCULOSKELETAL STIFFNESS [None]
  - NECK PAIN [None]
  - PAIN IN EXTREMITY [None]
